FAERS Safety Report 11527506 (Version 1)
Quarter: 2015Q3

REPORT INFORMATION
  Report Type: Spontaneous
  Country: US (occurrence: US)
  Receive Date: 20150903
  Receipt Date: 20150903
  Transmission Date: 20151125
  Serious: No
  Sender: FDA-Public Use
  Company Number: US-ELI_LILLY_AND_COMPANY-US200906006043

PATIENT
  Sex: Female

DRUGS (2)
  1. HUMALOG MIX75/25 [Suspect]
     Active Substance: INSULIN LISPRO
     Dosage: 46 U, EACH EVENING
  2. HUMALOG MIX75/25 [Suspect]
     Active Substance: INSULIN LISPRO
     Indication: TYPE 2 DIABETES MELLITUS
     Dosage: 36 U, EACH MORNING
     Dates: start: 2007

REACTIONS (8)
  - Central obesity [Unknown]
  - Vomiting [Unknown]
  - Peripheral swelling [Unknown]
  - Product taste abnormal [Unknown]
  - Arthritis [Unknown]
  - Finger deformity [Unknown]
  - Malaise [Unknown]
  - Musculoskeletal stiffness [Unknown]
